FAERS Safety Report 16305902 (Version 1)
Quarter: 2019Q2

REPORT INFORMATION
  Report Type: Other
  Country: RU (occurrence: RU)
  Receive Date: 20190513
  Receipt Date: 20190513
  Transmission Date: 20190711
  Serious: Yes (Disabling)
  Sender: FDA-Public Use
  Company Number: RU-B. BRAUN MEDICAL INC.-2066939

PATIENT
  Age: 45 Year

DRUGS (11)
  1. ATROPINE SULFATE. [Concomitant]
     Active Substance: ATROPINE SULFATE
     Route: 050
  2. TOBRAMYCIN. [Concomitant]
     Active Substance: TOBRAMYCIN
  3. CEFUROXIME FOR INJECTION USP AND DEXTROSE INJECTION USP [Suspect]
     Active Substance: CEFUROXIME SODIUM
     Route: 031
  4. POLYVIDONEIODE 5% [Concomitant]
     Route: 050
  5. DEXAMETHASONE. [Concomitant]
     Active Substance: DEXAMETHASONE
  6. MESATONUM 1% ADMINISTERED UNDER CONJUNCTIVA [Concomitant]
     Route: 050
  7. ALCAINE [Concomitant]
     Active Substance: PROPARACAINE HYDROCHLORIDE
  8. LIDOCAINE. [Concomitant]
     Active Substance: LIDOCAINE
  9. BSS [Concomitant]
     Active Substance: CALCIUM CHLORIDE\MAGNESIUM CHLORIDE\POTASSIUM CHLORIDE\SODIUM ACETATE\SODIUM CHLORIDE\SODIUM CITRATE
  10. NEPAFENACUM 0.1% [Concomitant]
  11. CYCLOPENTOLATUM 1% [Concomitant]

REACTIONS (1)
  - Serous retinal detachment [None]
